FAERS Safety Report 26095384 (Version 3)
Quarter: 2025Q4

REPORT INFORMATION
  Report Type: Spontaneous
  Country: US (occurrence: US)
  Receive Date: 20251127
  Receipt Date: 20251217
  Transmission Date: 20260118
  Serious: Yes (Hospitalization)
  Sender: TOLMAR
  Company Number: US-Tolmar-TLM-2025-08800

PATIENT
  Age: 9 Year
  Sex: Female

DRUGS (3)
  1. FENSOLVI [Suspect]
     Active Substance: LEUPROLIDE ACETATE
     Indication: Precocious puberty
     Dates: start: 20241118
  2. FENSOLVI [Suspect]
     Active Substance: LEUPROLIDE ACETATE
     Dates: start: 202505
  3. DEVICE [Suspect]
     Active Substance: DEVICE
     Indication: Precocious puberty

REACTIONS (2)
  - Infection [Not Recovered/Not Resolved]
  - Injection site mass [Not Recovered/Not Resolved]

NARRATIVE: CASE EVENT DATE: 20250501
